FAERS Safety Report 18125045 (Version 2)
Quarter: 2020Q3

REPORT INFORMATION
  Report Type: Report from Study
  Country: US (occurrence: US)
  Receive Date: 20200807
  Receipt Date: 20200918
  Transmission Date: 20201103
  Serious: No
  Sender: FDA-Public Use
  Company Number: NVSC2020US217864

PATIENT
  Age: 65 Year
  Sex: Male

DRUGS (2)
  1. ENTRESTO [Suspect]
     Active Substance: SACUBITRIL\VALSARTAN
     Dosage: 24.26 MG, ONCE2SDO
     Route: 048
     Dates: start: 20200506, end: 20200915
  2. ENTRESTO [Suspect]
     Active Substance: SACUBITRIL\VALSARTAN
     Indication: CARDIAC FAILURE
     Dosage: 1 DF, BID (24/26 MG)
     Route: 048
     Dates: start: 20200506

REACTIONS (7)
  - Fatigue [Unknown]
  - Dizziness [Recovered/Resolved with Sequelae]
  - Pruritus [Not Recovered/Not Resolved]
  - Fall [Unknown]
  - Throat clearing [Unknown]
  - Diplopia [Unknown]
  - Dysstasia [Unknown]

NARRATIVE: CASE EVENT DATE: 202005
